FAERS Safety Report 8565613-4 (Version None)
Quarter: 2012Q3

REPORT INFORMATION
  Report Type: 
  Country: None (occurrence: None)
  Receive Date: 20120803
  Receipt Date: 20120731
  Transmission Date: 20120928
  Serious: Yes (Life-Threatening, Hospitalization, Disabling, Other)
  Sender: FDA-Public Use
  Company Number: US-B.I. PHARMACEUTICALS,INC./RIDGEFIELD-2012-BP-17196BP

PATIENT
  Sex: Female

DRUGS (3)
  1. SPIRIVA [Suspect]
     Indication: ASTHMA
     Route: 065
  2. VENTOLIN [Suspect]
     Indication: ASTHMA
     Route: 055
     Dates: start: 20120605, end: 20120715
  3. FLUTICASONE PROPIONATE [Suspect]
     Indication: ASTHMA
     Dosage: 2 PUF
     Route: 055
     Dates: start: 20120606, end: 20120715

REACTIONS (4)
  - WHEEZING [None]
  - DYSPNOEA [None]
  - HYPOXIA [None]
  - DRUG INEFFECTIVE [None]
